FAERS Safety Report 5514582-X (Version None)
Quarter: 2007Q4

REPORT INFORMATION
  Report Type: 
  Country: None (occurrence: None)
  Receive Date: 20071113
  Receipt Date: 20071109
  Transmission Date: 20080405
  Serious: Yes (Other)
  Sender: FDA-Public Use
  Company Number: B0494599A

PATIENT
  Age: 75 Year
  Sex: Male
  Weight: 64 kg

DRUGS (4)
  1. ONDANSETRON [Suspect]
     Indication: NAUSEA
     Route: 042
     Dates: start: 20070926, end: 20070926
  2. FENTANYL [Concomitant]
     Route: 042
  3. PROPOFOL [Concomitant]
     Route: 042
  4. GLYCOPYRROLATE [Concomitant]
     Route: 042

REACTIONS (1)
  - DYSKINESIA [None]
